FAERS Safety Report 7036205-3 (Version None)
Quarter: 2010Q4

REPORT INFORMATION
  Report Type: 
  Country: None (occurrence: None)
  Receive Date: 20101007
  Receipt Date: 20101007
  Transmission Date: 20110411
  Serious: No
  Sender: FDA-Public Use
  Company Number: None

PATIENT
  Age: 35 Year
  Sex: Female
  Weight: 96.1626 kg

DRUGS (1)
  1. MELOXICAM [Suspect]
     Indication: BACK PAIN
     Dosage: 1 TABLET TWICE DAILY PO
     Route: 048
     Dates: start: 20100930, end: 20101002

REACTIONS (3)
  - HYPOAESTHESIA [None]
  - PAIN IN EXTREMITY [None]
  - SENSORY DISTURBANCE [None]
